FAERS Safety Report 4990647-6 (Version None)
Quarter: 2006Q2

REPORT INFORMATION
  Report Type: 
  Country: None (occurrence: None)
  Receive Date: 20060427
  Receipt Date: 20060412
  Transmission Date: 20061013
  Serious: Yes (Other)
  Sender: FDA-Public Use
  Company Number: US-2006-008800

PATIENT

DRUGS (1)
  1. FINACEA [Suspect]
     Indication: ROSACEA
     Dosage: 1X/DAY, TOPICAL
     Route: 061
     Dates: start: 20050424, end: 20060101

REACTIONS (3)
  - ABORTION INDUCED [None]
  - TRANSMISSION OF DRUG VIA SEMEN [None]
  - XYY SYNDROME [None]
